FAERS Safety Report 21879164 (Version 5)
Quarter: 2023Q1

REPORT INFORMATION
  Report Type: Spontaneous
  Country: US (occurrence: US)
  Receive Date: 20230118
  Receipt Date: 20230124
  Transmission Date: 20230417
  Serious: No
  Sender: FDA-Public Use
  Company Number: US-PFIZER INC-202300021541

PATIENT
  Age: 46 Year
  Sex: Female
  Weight: 57.15 kg

DRUGS (1)
  1. ZALEPLON [Suspect]
     Active Substance: ZALEPLON
     Indication: Terminal insomnia
     Dosage: 10 MG, AS NEEDED (10MG DAILY AS NEEDED FOR EARLY AWAKENING)
     Route: 048

REACTIONS (1)
  - Drug ineffective [Unknown]
